FAERS Safety Report 8998447 (Version 1)
Quarter: 2013Q1

REPORT INFORMATION
  Report Type: Spontaneous
  Country: TR (occurrence: TR)
  Receive Date: 20130103
  Receipt Date: 20130103
  Transmission Date: 20140127
  Serious: Yes (Other)
  Sender: FDA-Public Use
  Company Number: TR-PFIZER INC-2012331245

PATIENT
  Age: 35 Year
  Sex: Male

DRUGS (2)
  1. LIDOCAINE HCL [Suspect]
     Indication: LOCAL ANAESTHESIA
     Dosage: 2%, UNKNOWN
  2. EPINEPHRINE [Suspect]
     Indication: VASOCONSTRICTION
     Dosage: 1:100,000, UNKNOWN
     Route: 045

REACTIONS (3)
  - Ophthalmoplegia [Recovered/Resolved]
  - Blindness [Recovered/Resolved]
  - Pallor [Recovered/Resolved]
